FAERS Safety Report 10685226 (Version 1)
Quarter: 2014Q4

REPORT INFORMATION
  Report Type: Spontaneous
  Country: US (occurrence: None)
  Receive Date: 20141217
  Receipt Date: 20141217
  Transmission Date: 20150529
  Serious: Yes (Other)
  Sender: FDA-Public Use
  Company Number: 20140274

PATIENT
  Age: 41 Year
  Sex: Female

DRUGS (10)
  1. VENOFER [Suspect]
     Active Substance: IRON SUCROSE
     Indication: BLOOD IRON DECREASED
     Dosage: OVER 30-45 MINUTES  AT 4 PM  IV
     Route: 042
     Dates: start: 20140506, end: 20140506
  2. HUMALOG (INSULIN) [Concomitant]
  3. CLARITIN [Concomitant]
     Active Substance: LORATADINE
  4. NORVASC(AMLODIPINE) [Concomitant]
  5. IRON [Concomitant]
     Active Substance: IRON
  6. PRENATAL VITAMINS + IRON [Concomitant]
  7. SOLU-MEDROL [Suspect]
     Active Substance: METHYLPREDNISOLONE SODIUM SUCCINATE
     Indication: PRODUCT USED FOR UNKNOWN INDICATION
  8. VITAMIN B12 [Concomitant]
     Active Substance: CYANOCOBALAMIN
  9. DIOVAN / HYDROCHLOROTHIAZIDE [Concomitant]
  10. CALCIUM + VITAMIN D [Concomitant]
     Active Substance: CALCIUM\VITAMIN D

REACTIONS (2)
  - Hyperglycaemia [None]
  - Off label use [None]

NARRATIVE: CASE EVENT DATE: 20140506
